FAERS Safety Report 26106897 (Version 1)
Quarter: 2025Q4

REPORT INFORMATION
  Report Type: Spontaneous
  Country: CN (occurrence: CN)
  Receive Date: 20251201
  Receipt Date: 20251201
  Transmission Date: 20260118
  Serious: Yes (Hospitalization)
  Sender: CHEPLAPHARM
  Company Number: CN-CHEPLA-2025013404

PATIENT
  Age: 79 Year
  Sex: Female
  Weight: 37 kg

DRUGS (2)
  1. OLANZAPINE [Suspect]
     Active Substance: OLANZAPINE
     Indication: Hallucination
     Dosage: DAILY DOSE: 7.5 MILLIGRAM
     Route: 048
     Dates: start: 20251112, end: 20251121
  2. OLANZAPINE [Suspect]
     Active Substance: OLANZAPINE
     Indication: Hallucination
     Dosage: DAILY DOSE: 3.75 MILLIGRAM
     Route: 048
     Dates: start: 20251122, end: 20251124

REACTIONS (4)
  - Hypotension [Recovered/Resolved]
  - Miosis [Unknown]
  - Somnolence [Unknown]
  - Fatigue [Unknown]

NARRATIVE: CASE EVENT DATE: 20251119
